FAERS Safety Report 10204718 (Version 1)
Quarter: 2014Q2

REPORT INFORMATION
  Report Type: Spontaneous
  Country: US (occurrence: US)
  Receive Date: 20140529
  Receipt Date: 20140529
  Transmission Date: 20141212
  Serious: No
  Sender: FDA-Public Use
  Company Number: US-PFIZER INC-2014146905

PATIENT
  Age: 75 Year
  Sex: Female
  Weight: 72.56 kg

DRUGS (13)
  1. XELJANZ [Suspect]
     Dosage: 5 MG, 2X/DAY
     Route: 048
     Dates: start: 20140425
  2. PREDNISONE [Concomitant]
     Dosage: UNK
     Route: 048
  3. OXYCODONE [Concomitant]
     Dosage: UNK
     Route: 048
  4. FLEXERIL [Concomitant]
     Dosage: UNK, AS NEEDED
     Route: 048
  5. LOSARTAN [Concomitant]
     Indication: HYPERTENSION
     Dosage: 100 MG, AS NEEDED
     Route: 048
  6. CELEBREX [Concomitant]
     Dosage: 200 MG, 1X/DAY
     Route: 048
  7. FOLIC ACID [Concomitant]
     Dosage: 1 MG, 1X/DAY
     Route: 048
  8. HYDROCHLOROTHIAZIDE [Concomitant]
     Dosage: 1 MG, UNK
     Route: 048
  9. DILTIAZEM [Concomitant]
     Dosage: 240 MG, 1X/DAY
     Route: 048
  10. ALPRAZOLAM [Concomitant]
     Dosage: 0.5 MG, 2X/DAY
     Route: 048
  11. ZOCOR [Concomitant]
     Dosage: 10 MG, UNK
     Route: 048
  12. METHOTREXATE [Concomitant]
     Dosage: 2.5 MG, WEEKLY
     Route: 048
  13. FOSAMAX [Concomitant]
     Dosage: 75 MG, WEEKLY
     Route: 048

REACTIONS (4)
  - Upper limb fracture [Unknown]
  - Back pain [Unknown]
  - Pain in extremity [Unknown]
  - Contusion [Unknown]
